FAERS Safety Report 24539670 (Version 2)
Quarter: 2024Q4

REPORT INFORMATION
  Report Type: Spontaneous
  Country: PL (occurrence: PL)
  Receive Date: 20241023
  Receipt Date: 20241107
  Transmission Date: 20250115
  Serious: Yes (Hospitalization, Other)
  Sender: TEVA
  Company Number: PL-TEVA-VS-3254586

PATIENT
  Age: 10 Year
  Sex: Female

DRUGS (2)
  1. DICLOFENAC [Suspect]
     Active Substance: DICLOFENAC
     Indication: Osteomyelitis chronic
     Route: 048
     Dates: start: 2015
  2. CLOXACILLIN SODIUM [Suspect]
     Active Substance: CLOXACILLIN SODIUM
     Indication: Osteomyelitis chronic
     Route: 048
     Dates: start: 2015

REACTIONS (3)
  - Gastroenteritis [Recovered/Resolved]
  - Drug ineffective [Unknown]
  - Colitis [Recovered/Resolved]

NARRATIVE: CASE EVENT DATE: 20150101
